FAERS Safety Report 5751219-9 (Version None)
Quarter: 2008Q2

REPORT INFORMATION
  Report Type: 
  Country: None (occurrence: None)
  Receive Date: 20080528
  Receipt Date: 20080430
  Transmission Date: 20081010
  Serious: No
  Sender: FDA-Public Use
  Company Number: US-BOEHRINGER INGELHEIM GMBH, GERMANY-2008-BP-06798BP

PATIENT
  Sex: Female

DRUGS (5)
  1. AGGRENOX [Suspect]
     Indication: CEREBROVASCULAR ACCIDENT
     Dosage: 50MG ASPIRIN/400 MG EXTENDED RELEASE DIPYRIDAMOLE
     Route: 048
     Dates: start: 20080424, end: 20080424
  2. AGGRENOX [Suspect]
     Indication: THROMBOSIS PROPHYLAXIS
  3. ARMOUR [Concomitant]
     Indication: THYROID DISORDER
  4. HYDROCHLOROTHIAZIDE [Concomitant]
     Indication: FLUID RETENTION
  5. ASPIRIN [Concomitant]
     Indication: PROPHYLAXIS

REACTIONS (4)
  - ASTHENIA [None]
  - HEADACHE [None]
  - NAUSEA [None]
  - VOMITING [None]
